FAERS Safety Report 5441763-6 (Version None)
Quarter: 2007Q3

REPORT INFORMATION
  Report Type: 
  Country: None (occurrence: None)
  Receive Date: 20070829
  Receipt Date: 20070829
  Transmission Date: 20080115
  Serious: Yes (Hospitalization)
  Sender: FDA-Public Use
  Company Number: None

PATIENT
  Age: 61 Year
  Sex: Male

DRUGS (2)
  1. CLOPIDOGREL [Suspect]
     Indication: STENT PLACEMENT
     Dosage: 75MG EVERY DAY PO
     Route: 048
     Dates: start: 20060908
  2. ASPIRIN [Suspect]
     Indication: PROPHYLAXIS
     Dosage: 81MG EVERY DAY PO
     Route: 048
     Dates: start: 20061018

REACTIONS (3)
  - CHEST DISCOMFORT [None]
  - DYSPNOEA [None]
  - MELAENA [None]
